FAERS Safety Report 24250978 (Version 1)
Quarter: 2024Q3

REPORT INFORMATION
  Report Type: Spontaneous
  Country: US (occurrence: None)
  Receive Date: 20240826
  Receipt Date: 20240826
  Transmission Date: 20241016
  Serious: Yes (Hospitalization)
  Sender: Public
  Company Number: None

PATIENT
  Sex: Female

DRUGS (8)
  1. PULMOZYME [Suspect]
     Active Substance: DORNASE ALFA
     Indication: Cystic fibrosis
     Dosage: FREQUENCY : DAILY;?OTHER ROUTE : NEBULIZER;?
     Route: 050
  2. BUDESONIDE [Concomitant]
     Active Substance: BUDESONIDE
  3. CALTRATE+D [Concomitant]
  4. CIPROFLOXACIN [Concomitant]
     Active Substance: CIPROFLOXACIN
  5. KALYDECO [Concomitant]
  6. MAGNESIUM [Concomitant]
  7. PULMOZYME [Concomitant]
     Active Substance: DORNASE ALFA
  8. SODIUM CHLROIDE [Concomitant]

REACTIONS (2)
  - Renal pain [None]
  - Pulmonary mass [None]
